FAERS Safety Report 5896186-2 (Version None)
Quarter: 2008Q3

REPORT INFORMATION
  Report Type: 
  Country: None (occurrence: None)
  Receive Date: 20080924
  Receipt Date: 20071119
  Transmission Date: 20090109
  Serious: Yes (Other)
  Sender: FDA-Public Use
  Company Number: US-ASTRAZENECA-2007UW02028

PATIENT
  Age: 229 Month
  Sex: Female
  Weight: 97.1 kg

DRUGS (4)
  1. SEROQUEL [Suspect]
     Indication: BIPOLAR DISORDER
     Route: 048
     Dates: start: 20020101, end: 20060101
  2. RISPERDAL [Concomitant]
     Route: 048
     Dates: start: 20020101, end: 20050101
  3. THORAZINE [Concomitant]
     Dates: start: 20020101, end: 20030101
  4. DEPAKOTE [Concomitant]
     Route: 048

REACTIONS (20)
  - ABDOMINAL PAIN [None]
  - BACK PAIN [None]
  - DYSPNOEA [None]
  - EAR PAIN [None]
  - GASTRIC DISORDER [None]
  - HEADACHE [None]
  - HEART RATE INCREASED [None]
  - INFECTION [None]
  - MIGRAINE [None]
  - NAUSEA [None]
  - NECK PAIN [None]
  - OBESITY [None]
  - OROPHARYNGEAL PAIN [None]
  - PAIN IN EXTREMITY [None]
  - RESTLESS LEGS SYNDROME [None]
  - SOMNOLENCE [None]
  - SYNCOPE [None]
  - TYPE 2 DIABETES MELLITUS [None]
  - VERTIGO [None]
  - WEIGHT INCREASED [None]
